FAERS Safety Report 21983215 (Version 1)
Quarter: 2023Q1

REPORT INFORMATION
  Report Type: Spontaneous
  Country: US (occurrence: US)
  Receive Date: 20230213
  Receipt Date: 20230213
  Transmission Date: 20230418
  Serious: No
  Sender: FDA-Public Use
  Company Number: US-BAUSCH-BL-2023-001646

PATIENT
  Age: 31 Year
  Sex: Male

DRUGS (1)
  1. CUPRIMINE [Suspect]
     Active Substance: PENICILLAMINE
     Indication: Product used for unknown indication
     Route: 065

REACTIONS (1)
  - Drug hypersensitivity [Unknown]
